FAERS Safety Report 5944825-X (Version None)
Quarter: 2008Q4

REPORT INFORMATION
  Report Type: 
  Country: None (occurrence: None)
  Receive Date: 20081107
  Receipt Date: 20081016
  Transmission Date: 20090506
  Serious: No
  Sender: FDA-Public Use
  Company Number: US-BAYER-200814116BCC

PATIENT
  Age: 70 Year
  Sex: Female
  Weight: 82 kg

DRUGS (3)
  1. ALEVE [Suspect]
     Indication: PAIN IN EXTREMITY
     Dosage: TOTAL DAILY DOSE: 440 MG  UNIT DOSE: 220 MG
     Route: 048
     Dates: start: 20081016
  2. VITAMINS [Concomitant]
  3. PREVASIT [Concomitant]

REACTIONS (1)
  - PAIN IN EXTREMITY [None]
